FAERS Safety Report 21065249 (Version 1)
Quarter: 2022Q3

REPORT INFORMATION
  Report Type: Spontaneous
  Country: US (occurrence: None)
  Receive Date: 20220711
  Receipt Date: 20220711
  Transmission Date: 20221027
  Serious: No
  Sender: FDA-Public Use
  Company Number: None

PATIENT
  Age: 82 Year
  Sex: Female

DRUGS (1)
  1. OCTREOTIDE ACETATE [Suspect]
     Active Substance: OCTREOTIDE ACETATE
     Dosage: OTHER FREQUENCY : OTHER;?
     Route: 058
     Dates: start: 202201

REACTIONS (6)
  - Flushing [None]
  - Chest pain [None]
  - Pharyngeal swelling [None]
  - Dyspnoea [None]
  - Injection site erythema [None]
  - Headache [None]

NARRATIVE: CASE EVENT DATE: 20220118
